FAERS Safety Report 9896625 (Version 1)
Quarter: 2014Q1

REPORT INFORMATION
  Report Type: Spontaneous
  Country: US (occurrence: US)
  Receive Date: 20140213
  Receipt Date: 20140213
  Transmission Date: 20141002
  Serious: No
  Sender: FDA-Public Use
  Company Number: US-BRISTOL-MYERS SQUIBB COMPANY-19920222

PATIENT
  Age: 65 Year
  Sex: Female
  Weight: 158.73 kg

DRUGS (1)
  1. ORENCIA [Suspect]
     Indication: RHEUMATOID ARTHRITIS
     Dosage: LAST DOSE ON 12DEC13
     Route: 042
     Dates: start: 201302

REACTIONS (1)
  - Sinusitis [Unknown]
